FAERS Safety Report 7826777-0 (Version None)
Quarter: 2011Q4

REPORT INFORMATION
  Report Type: 
  Country: None (occurrence: None)
  Receive Date: 20111020
  Receipt Date: 20111005
  Transmission Date: 20120403
  Serious: Yes (Hospitalization)
  Sender: FDA-Public Use
  Company Number: US-BAYER-2011-052627

PATIENT
  Age: 30 Year
  Sex: Female
  Weight: 71.655 kg

DRUGS (11)
  1. FLEXERIL [Concomitant]
     Indication: MUSCLE SPASMS
  2. AVELOX [Concomitant]
     Dosage: UNK
     Dates: start: 20090614, end: 20090601
  3. YASMIN [Suspect]
     Indication: PREMENSTRUAL SYNDROME
  4. FLEXERIL [Concomitant]
     Indication: SLEEP DISORDER
     Dosage: 10 MG, PRN
     Route: 048
     Dates: start: 20090528
  5. YAZ [Suspect]
     Indication: PREMENSTRUAL SYNDROME
  6. YAZ [Suspect]
  7. YAZ [Suspect]
     Indication: CONTRACEPTION
     Dosage: UNK
     Route: 048
     Dates: start: 20090610, end: 20090617
  8. YASMIN [Suspect]
     Indication: CONTRACEPTION
     Dosage: UNK
     Route: 048
     Dates: start: 20090101, end: 20090101
  9. PREVACID [Concomitant]
     Dosage: 20 MG, UNK
     Route: 048
     Dates: start: 20090528
  10. YASMIN [Suspect]
  11. PREDNISONE [Concomitant]
     Dosage: 20 MG, UNK
     Route: 048

REACTIONS (3)
  - PAIN [None]
  - PULMONARY EMBOLISM [None]
  - DEEP VEIN THROMBOSIS [None]
